FAERS Safety Report 13762649 (Version 3)
Quarter: 2019Q3

REPORT INFORMATION
  Report Type: Report from Study
  Country: DE (occurrence: DE)
  Receive Date: 20170718
  Receipt Date: 20190816
  Transmission Date: 20191004
  Serious: Yes (Other)
  Sender: FDA-Public Use
  Company Number: PHHY2017DE103365

PATIENT
  Sex: Male
  Weight: 85 kg

DRUGS (15)
  1. XARELTO [Concomitant]
     Active Substance: RIVAROXABAN
     Indication: PROPHYLAXIS
     Dosage: 15 MG, BID
     Route: 048
     Dates: start: 20170205, end: 20170606
  2. AMLODIPINE [Concomitant]
     Active Substance: AMLODIPINE BESYLATE
     Indication: PROPHYLAXIS
     Dosage: 5 MG, QD
     Route: 048
     Dates: start: 20170709, end: 20180430
  3. VOTRIENT [Suspect]
     Active Substance: PAZOPANIB HYDROCHLORIDE
     Dosage: 400 MG, QD
     Route: 048
     Dates: start: 20170528, end: 20170606
  4. XARELTO [Concomitant]
     Active Substance: RIVAROXABAN
     Dosage: 20 MG, BID
     Route: 048
     Dates: start: 20170606
  5. L-THYROXIN [Concomitant]
     Active Substance: LEVOTHYROXINE SODIUM
     Dosage: 50 UG, QD
     Route: 048
     Dates: start: 20180213
  6. L-THYROXIN [Concomitant]
     Active Substance: LEVOTHYROXINE SODIUM
     Indication: PROPHYLAXIS
     Dosage: 25 UG, QD
     Route: 048
     Dates: start: 20180206, end: 20180212
  7. VOTRIENT [Suspect]
     Active Substance: PAZOPANIB HYDROCHLORIDE
     Dosage: 400 MG, QD
     Route: 048
     Dates: start: 20170607, end: 20170622
  8. VOTRIENT [Suspect]
     Active Substance: PAZOPANIB HYDROCHLORIDE
     Dosage: 400 MG, QD
     Route: 048
     Dates: start: 20170623, end: 20170628
  9. VOTRIENT [Suspect]
     Active Substance: PAZOPANIB HYDROCHLORIDE
     Indication: METASTATIC RENAL CELL CARCINOMA
     Dosage: 800 MG, QD
     Route: 048
     Dates: start: 20170505, end: 20170518
  10. VITAMIN D3 [Concomitant]
     Active Substance: CHOLECALCIFEROL
     Indication: PROPHYLAXIS
     Dosage: 5200 IU, BID
     Route: 048
     Dates: start: 20170504, end: 20170606
  11. ENALAPRIL [Concomitant]
     Active Substance: ENALAPRIL
     Indication: PROPHYLAXIS
     Dosage: 5 MG, QD
     Route: 048
     Dates: start: 20170626, end: 20170706
  12. BAYOTENSIN [Concomitant]
     Active Substance: NITRENDIPINE
     Indication: PROPHYLAXIS
     Dosage: 5 MG, PRN
     Route: 048
     Dates: start: 20170629
  13. VOTRIENT [Suspect]
     Active Substance: PAZOPANIB HYDROCHLORIDE
     Dosage: 400 MG, QD
     Route: 048
     Dates: start: 20170711, end: 20171102
  14. VOTRIENT [Suspect]
     Active Substance: PAZOPANIB HYDROCHLORIDE
     Dosage: 400 MG, QD
     Route: 048
     Dates: start: 20171211, end: 20180425
  15. ENALAPRIL [Concomitant]
     Active Substance: ENALAPRIL
     Dosage: 5 MG, QD
     Route: 048
     Dates: start: 20170706, end: 20180430

REACTIONS (2)
  - Toxic neuropathy [Recovered/Resolved]
  - Hypertensive crisis [Recovered/Resolved]

NARRATIVE: CASE EVENT DATE: 20170518
